FAERS Safety Report 5365107-3 (Version None)
Quarter: 2007Q2

REPORT INFORMATION
  Report Type: 
  Country: None (occurrence: None)
  Receive Date: 20070530
  Receipt Date: 20070125
  Transmission Date: 20071010
  Serious: No
  Sender: FDA-Public Use
  Company Number: 2007PV029043

PATIENT
  Age: 49 Year
  Sex: Female

DRUGS (7)
  1. BYETTA [Suspect]
     Indication: DIABETES MELLITUS NON-INSULIN-DEPENDENT
     Dosage: 5 MCG; BID; SC, 10 MCG; BID; SC, 5 MCG; BID; SC
     Route: 058
     Dates: start: 20060401, end: 20061001
  2. BYETTA [Suspect]
     Indication: DIABETES MELLITUS NON-INSULIN-DEPENDENT
     Dosage: 5 MCG; BID; SC, 10 MCG; BID; SC, 5 MCG; BID; SC
     Route: 058
     Dates: start: 20061001, end: 20061101
  3. BYETTA [Suspect]
     Indication: DIABETES MELLITUS NON-INSULIN-DEPENDENT
     Dosage: 5 MCG; BID; SC, 10 MCG; BID; SC, 5 MCG; BID; SC
     Route: 058
     Dates: start: 20061101, end: 20070122
  4. GLUCOPHAGE [Concomitant]
  5. GLYBURIDE [Concomitant]
  6. PREVACID [Concomitant]
  7. ENALAPRIL MALEATE [Concomitant]

REACTIONS (9)
  - BONE PAIN [None]
  - CONSTIPATION [None]
  - DYSGEUSIA [None]
  - MUSCLE INJURY [None]
  - NAUSEA [None]
  - TENDON PAIN [None]
  - TENDON RUPTURE [None]
  - VOMITING [None]
  - WEIGHT DECREASED [None]
